FAERS Safety Report 5595375-4 (Version None)
Quarter: 2008Q1

REPORT INFORMATION
  Report Type: 
  Country: None (occurrence: None)
  Receive Date: 20080117
  Receipt Date: 20080115
  Transmission Date: 20080703
  Serious: Yes (Death)
  Sender: FDA-Public Use
  Company Number: TH-GILEAD-2008-0014967

PATIENT
  Age: 33 Year
  Sex: Male
  Weight: 50.55 kg

DRUGS (3)
  1. TENOFOVIR [Suspect]
     Route: 048
     Dates: start: 20051214, end: 20080101
  2. LAMIVUDINE [Suspect]
     Route: 048
     Dates: start: 20050715, end: 20080101
  3. EFAVIRENZ [Suspect]
     Route: 048
     Dates: start: 20050715, end: 20080101

REACTIONS (3)
  - ASPHYXIA [None]
  - COMPLETED SUICIDE [None]
  - DEATH [None]
